FAERS Safety Report 12890452 (Version 2)
Quarter: 2018Q1

REPORT INFORMATION
  Report Type: Spontaneous
  Country: US (occurrence: US)
  Receive Date: 20161027
  Receipt Date: 20180313
  Transmission Date: 20180508
  Serious: No
  Sender: FDA-Public Use
  Company Number: US-JAZZ-2016-US-015560

PATIENT
  Age: 41 Year
  Sex: Female

DRUGS (39)
  1. XYREM [Suspect]
     Active Substance: SODIUM OXYBATE
     Indication: NARCOLEPSY
     Dosage: 2.25 G, BID
     Route: 048
     Dates: start: 201203, end: 201204
  2. XYREM [Suspect]
     Active Substance: SODIUM OXYBATE
     Dosage: 3 G, BID
     Route: 048
     Dates: start: 201204, end: 201209
  3. ZINC GLUCONATE [Concomitant]
     Active Substance: ZINC GLUCONATE
  4. VERAPAMIL [Concomitant]
     Active Substance: VERAPAMIL HYDROCHLORIDE
  5. PROPRANOLOL [Concomitant]
     Active Substance: PROPRANOLOL HYDROCHLORIDE
  6. BENADRYL [Concomitant]
     Active Substance: DIPHENHYDRAMINE HYDROCHLORIDE
  7. PHENERGAN [Concomitant]
     Active Substance: PROMETHAZINE HYDROCHLORIDE
  8. MAGNESIUM [Concomitant]
     Active Substance: MAGNESIUM
  9. SELENIUM [Concomitant]
     Active Substance: SELENIUM
  10. XANAX [Concomitant]
     Active Substance: ALPRAZOLAM
  11. IODINE. [Concomitant]
     Active Substance: IODINE
  12. CALCARB [Concomitant]
  13. ZINC ACETATE [Concomitant]
     Active Substance: ZINC ACETATE
  14. TRAMADOL HCL [Concomitant]
     Active Substance: TRAMADOL HYDROCHLORIDE
  15. CALAN [Concomitant]
     Active Substance: VERAPAMIL HYDROCHLORIDE
  16. DEMEROL [Concomitant]
     Active Substance: MEPERIDINE HYDROCHLORIDE
  17. ALBUTEROL SULFATE HFA [Concomitant]
     Active Substance: ALBUTEROL SULFATE
  18. SPIRONOLACTONE. [Concomitant]
     Active Substance: SPIRONOLACTONE
  19. XYREM [Suspect]
     Active Substance: SODIUM OXYBATE
     Dosage: 4.5 G, BID
     Route: 048
     Dates: start: 201209, end: 20160814
  20. PROMETHAZINE [Concomitant]
     Active Substance: PROMETHAZINE\PROMETHAZINE HYDROCHLORIDE
  21. TRAZODONE HYDROCHLORIDE. [Concomitant]
     Active Substance: TRAZODONE HYDROCHLORIDE
  22. VITAMIN C [Concomitant]
     Active Substance: ASCORBIC ACID
  23. TORADOL [Concomitant]
     Active Substance: KETOROLAC TROMETHAMINE
  24. CHROMIUM PICOLINATE [Concomitant]
     Active Substance: CHROMIUM PICOLINATE
  25. MINIVELLE [Concomitant]
     Active Substance: ESTRADIOL
  26. NATURE-THROID [Concomitant]
     Active Substance: THYROID, PORCINE
  27. VITAMIN K [Concomitant]
     Active Substance: PHYTONADIONE
  28. COMPAZINE [Concomitant]
     Active Substance: PROCHLORPERAZINE MALEATE
  29. PERCOCET [Concomitant]
     Active Substance: ACETAMINOPHEN\OXYCODONE HYDROCHLORIDE
  30. WESTHROID [Concomitant]
     Active Substance: THYROGLOBULIN
  31. VITAMIN D3 [Concomitant]
     Active Substance: CHOLECALCIFEROL
  32. MELATONIN [Concomitant]
     Active Substance: MELATONIN
  33. MULTIVITAMIN [Concomitant]
     Active Substance: VITAMINS
  34. KLONOPIN [Concomitant]
     Active Substance: CLONAZEPAM
  35. ATIVAN [Concomitant]
     Active Substance: LORAZEPAM
  36. METHOCARBAMOL. [Concomitant]
     Active Substance: METHOCARBAMOL
  37. CALCIUM CITRATE WITH VITAMIN D3 [Concomitant]
  38. FOLIC ACID. [Concomitant]
     Active Substance: FOLIC ACID
  39. MAGNESIUM CITRATE. [Concomitant]
     Active Substance: MAGNESIUM CITRATE

REACTIONS (5)
  - Migraine [Recovering/Resolving]
  - Intervertebral disc protrusion [Not Recovered/Not Resolved]
  - Nausea [Recovered/Resolved]
  - Blood pressure increased [Not Recovered/Not Resolved]
  - Fatigue [Recovering/Resolving]

NARRATIVE: CASE EVENT DATE: 201608
